FAERS Safety Report 8229679-3 (Version None)
Quarter: 2012Q1

REPORT INFORMATION
  Report Type: 
  Country: None (occurrence: None)
  Receive Date: 20120322
  Receipt Date: 20120319
  Transmission Date: 20120608
  Serious: Yes (Hospitalization)
  Sender: FDA-Public Use
  Company Number: PHHY2012AR024470

PATIENT
  Sex: Male

DRUGS (1)
  1. STALEVO 100 [Suspect]
     Indication: DEMENTIA WITH LEWY BODIES
     Dosage: 0.25 DF, Q4H
     Route: 042
     Dates: start: 20120201

REACTIONS (4)
  - KIDNEY INFECTION [None]
  - WRONG TECHNIQUE IN DRUG USAGE PROCESS [None]
  - LUNG INFECTION [None]
  - INCORRECT ROUTE OF DRUG ADMINISTRATION [None]
